FAERS Safety Report 8375567-1 (Version None)
Quarter: 2012Q1

REPORT INFORMATION
  Report Type: 
  Country: None (occurrence: None)
  Receive Date: 20120323
  Receipt Date: 20110202
  Transmission Date: 20120608
  Serious: Yes (Hospitalization)
  Sender: FDA-Public Use
  Company Number: 163-21880-11020465

PATIENT
  Age: 73 Year
  Sex: Female
  Weight: 68.03 kg

DRUGS (11)
  1. VITAMIN D [Concomitant]
  2. DEXAMETHASONE [Concomitant]
  3. ACETAMINOPHEN [Concomitant]
  4. REVLIMID [Suspect]
     Indication: MULTIPLE MYELOMA
     Dosage: 15 MG, DAILY X 21 DAYS, PO, 15 MG, DAILY X 21 DAYS, PO
     Route: 048
     Dates: start: 20101230, end: 20110107
  5. REVLIMID [Suspect]
     Indication: MULTIPLE MYELOMA
     Dosage: 15 MG, DAILY X 21 DAYS, PO, 15 MG, DAILY X 21 DAYS, PO
     Route: 048
     Dates: start: 20110121
  6. COREG [Concomitant]
  7. PRILOSEC [Concomitant]
  8. AMLODIPINE [Concomitant]
  9. AMBIEN [Concomitant]
  10. ZOMETA [Concomitant]
  11. GLUCOS/CHROND (GLUCOSAMINE W/CHONDROITIN SULFATE) [Concomitant]

REACTIONS (1)
  - PNEUMONIA [None]
